FAERS Safety Report 8507772-5 (Version None)
Quarter: 2012Q3

REPORT INFORMATION
  Report Type: 
  Country: None (occurrence: None)
  Receive Date: 20120709
  Receipt Date: 20120709
  Transmission Date: 20120928
  Serious: Yes (Other)
  Sender: FDA-Public Use
  Company Number: None

PATIENT
  Age: 60 Year
  Sex: Female
  Weight: 99.7913 kg

DRUGS (3)
  1. LATISSE [Suspect]
     Indication: GROWTH OF EYELASHES
     Dosage: 1 GTTS QD OTIC
     Route: 047
     Dates: start: 20120401, end: 20120705
  2. ALTASE [Concomitant]
  3. LANSOPRAZOLE [Concomitant]

REACTIONS (1)
  - VITREOUS DETACHMENT [None]
